FAERS Safety Report 16443203 (Version 1)
Quarter: 2019Q2

REPORT INFORMATION
  Report Type: Spontaneous
  Country: US (occurrence: US)
  Receive Date: 20190617
  Receipt Date: 20190617
  Transmission Date: 20190711
  Serious: No
  Sender: FDA-Public Use
  Company Number: US-TEVA-2019-US-1062396

PATIENT
  Sex: Male

DRUGS (1)
  1. ALBUTEROL SULPHATE HFA [Suspect]
     Active Substance: ALBUTEROL SULFATE
     Dosage: CARTON 1

REACTIONS (3)
  - Extra dose administered [Unknown]
  - Product substitution issue [Unknown]
  - Drug ineffective [Unknown]
